FAERS Safety Report 4341656-1 (Version None)
Quarter: 2004Q2

REPORT INFORMATION
  Report Type: 
  Country: None (occurrence: None)
  Receive Date: 20040415
  Receipt Date: 20040331
  Transmission Date: 20050107
  Serious: Yes (Other)
  Sender: FDA-Public Use
  Company Number: GBS040414679

PATIENT
  Age: 62 Year
  Sex: Female
  Weight: 60 kg

DRUGS (6)
  1. FLUOXETINE [Suspect]
     Indication: DEPRESSION
     Dosage: 20 MG
     Dates: start: 20040228, end: 20040309
  2. SULFASALAZINE [Concomitant]
  3. CELECOXIB [Concomitant]
  4. CO-CODAMOL [Concomitant]
  5. LANSOPRAZOLE [Concomitant]
  6. ACETAMINOPHEN [Concomitant]

REACTIONS (5)
  - ASTHENIA [None]
  - CONFUSIONAL STATE [None]
  - HYPERTENSION [None]
  - LETHARGY [None]
  - PALPITATIONS [None]
